FAERS Safety Report 23131703 (Version 2)
Quarter: 2023Q4

REPORT INFORMATION
  Report Type: Spontaneous
  Country: JP (occurrence: JP)
  Receive Date: 20231031
  Receipt Date: 20231109
  Transmission Date: 20240110
  Serious: Yes (Hospitalization, Other)
  Sender: FDA-Public Use
  Company Number: JP-009507513-2310JPN012663

PATIENT
  Age: 73 Year
  Sex: Male

DRUGS (5)
  1. PEMBROLIZUMAB [Suspect]
     Active Substance: PEMBROLIZUMAB
     Indication: Lung adenocarcinoma
     Dosage: 2 CYCLES, EVERY 4 WEEKS
  2. PEMBROLIZUMAB [Suspect]
     Active Substance: PEMBROLIZUMAB
     Dosage: 3 CYCLES, EVERY 3 WEEKS (Q3W)
  3. CARBOPLATIN [Concomitant]
     Active Substance: CARBOPLATIN
     Indication: Lung adenocarcinoma
     Dosage: 2 CYCLES, EVERY 4 WEEKS
  4. PEMETREXED [Concomitant]
     Active Substance: PEMETREXED
     Indication: Lung adenocarcinoma
     Dosage: 2 CYCLES, EVERY 4 WEEKS
  5. PEMETREXED [Concomitant]
     Active Substance: PEMETREXED
     Dosage: 3 CYCLES, EVERY 3 WEEKS (Q3W)

REACTIONS (2)
  - Pulmonary toxicity [Recovering/Resolving]
  - Encephalitis [Recovered/Resolved]
